FAERS Safety Report 8623358-6 (Version None)
Quarter: 2012Q3

REPORT INFORMATION
  Report Type: 
  Country: None (occurrence: None)
  Receive Date: 20120827
  Receipt Date: 20120816
  Transmission Date: 20120928
  Serious: Yes (Other)
  Sender: FDA-Public Use
  Company Number: BR-ASTRAZENECA-2012SE60252

PATIENT
  Age: 77 Year
  Sex: Female

DRUGS (5)
  1. ATORVASTATIN CALCIUM [Concomitant]
     Route: 048
  2. ATORVASTATIN [Concomitant]
     Route: 048
  3. ATACAND HCT [Suspect]
     Indication: HYPERTENSION
     Dosage: 8/12.5 MG OD
     Route: 048
     Dates: start: 20120201, end: 20120815
  4. METFORMIN HYDROCHLORIDE [Concomitant]
     Indication: DIABETES MELLITUS
     Route: 048
  5. SOMALGIN CARDIO [Concomitant]
     Route: 048

REACTIONS (1)
  - CORONARY ARTERY OCCLUSION [None]
